FAERS Safety Report 17192514 (Version 1)
Quarter: 2019Q4

REPORT INFORMATION
  Report Type: Spontaneous
  Country: HR (occurrence: HR)
  Receive Date: 20191223
  Receipt Date: 20191223
  Transmission Date: 20200122
  Serious: Yes (Other)
  Sender: FDA-Public Use
  Company Number: HR-ABBVIE-19K-216-3207914-00

PATIENT
  Age: 27 Year
  Sex: Female
  Weight: 77 kg

DRUGS (1)
  1. HUMIRA [Suspect]
     Active Substance: ADALIMUMAB
     Indication: CROHN^S DISEASE
     Route: 058
     Dates: start: 20170726, end: 201802

REACTIONS (2)
  - Skin induration [Not Recovered/Not Resolved]
  - Fibromatosis [Not Recovered/Not Resolved]

NARRATIVE: CASE EVENT DATE: 201801
